FAERS Safety Report 7526360-0 (Version None)
Quarter: 2011Q2

REPORT INFORMATION
  Report Type: 
  Country: None (occurrence: None)
  Receive Date: 20110606
  Receipt Date: 20090316
  Transmission Date: 20111010
  Serious: Yes (Hospitalization, Other)
  Sender: FDA-Public Use
  Company Number: US-BAYER-200915583NA

PATIENT
  Age: 71 Year
  Sex: Male
  Weight: 79 kg

DRUGS (12)
  1. NORVASC [Concomitant]
     Dosage: 5MG DAILY
     Route: 048
     Dates: start: 20040101
  2. HEPARIN [Concomitant]
     Dosage: UNK
     Route: 042
     Dates: start: 20040326, end: 20040326
  3. PROTAMINE SULFATE [Concomitant]
     Dosage: 250 MG
     Route: 042
     Dates: start: 20040326, end: 20040326
  4. TRASYLOL [Suspect]
     Dosage: LOADING DOSE OF 200ML BOLUS
     Route: 042
     Dates: start: 20040326, end: 20040326
  5. NITROGLYCERIN [Concomitant]
     Dosage: 1 INCH EVER SIX HOURS
     Route: 048
  6. LIPITOR [Concomitant]
     Dosage: LIPITOR
     Route: 048
     Dates: start: 20040101
  7. TRASYLOL [Suspect]
     Indication: CORONARY ARTERY BYPASS
     Dosage: INITIAL (TEST) DOSE  OF  1 ML
     Dates: start: 20040326, end: 20040326
  8. ACETYLSALICYLIC ACID SRT [Concomitant]
     Dosage: 325 MG DAILY
     Route: 048
     Dates: start: 20040101
  9. TOPROL-XL [Concomitant]
     Dosage: UNK
     Route: 048
     Dates: start: 20040101
  10. CLONIDINE [Concomitant]
     Dosage: 0.1 MG/1-2 TABLETS AS NEEDED
     Route: 048
     Dates: start: 20040101
  11. CARDIOPLEGIA [Concomitant]
     Dosage: 900CC
     Dates: start: 20040326
  12. LOPRESSOR [Concomitant]
     Dosage: 25MG/EVERY SIX
     Route: 048
     Dates: start: 20040101

REACTIONS (10)
  - UNEVALUABLE EVENT [None]
  - FEAR [None]
  - ADVERSE EVENT [None]
  - RENAL FAILURE [None]
  - INJURY [None]
  - DEPRESSION [None]
  - PAIN [None]
  - ANXIETY [None]
  - ANHEDONIA [None]
  - CEREBROVASCULAR ACCIDENT [None]
